FAERS Safety Report 8044221-8 (Version None)
Quarter: 2012Q1

REPORT INFORMATION
  Report Type: 
  Country: None (occurrence: None)
  Receive Date: 20120113
  Receipt Date: 20120105
  Transmission Date: 20120608
  Serious: Yes (Hospitalization)
  Sender: FDA-Public Use
  Company Number: GB-AMGEN-GBRSP2012001208

PATIENT
  Age: 68 Year
  Sex: Male

DRUGS (6)
  1. RAMIPRIL [Concomitant]
     Dosage: UNK
  2. ENBREL [Suspect]
     Indication: RHEUMATOID ARTHRITIS
     Dosage: 25 MG, 2X/WEEK
     Route: 058
     Dates: start: 20080423, end: 20111113
  3. LANSOPRAZOLE [Concomitant]
     Dosage: UNK
  4. AMITRIPTYLINE HCL [Concomitant]
     Dosage: EVERY NIGHT
  5. SIMVASTATIN [Concomitant]
     Dosage: UNK
  6. ACETAMINOPHEN [Concomitant]
     Dosage: 1 G, AS NEEDED

REACTIONS (1)
  - HEMIPARESIS [None]
